FAERS Safety Report 10100421 (Version 1)
Quarter: 2014Q2

REPORT INFORMATION
  Report Type: Report from Study
  Country: JP (occurrence: JP)
  Receive Date: 20140423
  Receipt Date: 20140423
  Transmission Date: 20141212
  Serious: Yes (Other)
  Sender: FDA-Public Use
  Company Number: JP-SA-2014SA051581

PATIENT
  Sex: 0

DRUGS (3)
  1. OXALIPLATIN [Suspect]
     Indication: RECTAL ADENOCARCINOMA
     Dosage: 130 MG/M2 OVER A 2-H PERIOD, ON DAY 1, 3-WEEK CYCLE,
     Route: 065
  2. CAPECITABINE [Suspect]
     Indication: RECTAL ADENOCARCINOMA
     Dosage: ON DAY 1 THROUGH 15, 3 WEEK CYCLE,
     Route: 048
  3. BEVACIZUMAB [Suspect]
     Indication: RECTAL ADENOCARCINOMA
     Dosage: INFUSION ON DAY 1, 3 WEEK CYCLE
     Route: 042

REACTIONS (2)
  - Fistula [Unknown]
  - Pelvic abscess [Unknown]
